FAERS Safety Report 14343255 (Version 2)
Quarter: 2018Q1

REPORT INFORMATION
  Report Type: Report from Study
  Country: DE (occurrence: DE)
  Receive Date: 20180102
  Receipt Date: 20180118
  Transmission Date: 20180509
  Serious: Yes (Hospitalization, Other)
  Sender: FDA-Public Use
  Company Number: PHHY2016DE058015

PATIENT
  Age: 76 Year
  Sex: Male
  Weight: 82 kg

DRUGS (18)
  1. REVOLADE [Suspect]
     Active Substance: ELTROMBOPAG
     Indication: IMMUNE THROMBOCYTOPENIC PURPURA
     Dosage: 50 MG, QD
     Route: 065
     Dates: start: 20160113, end: 201606
  2. LANTUS [Concomitant]
     Active Substance: INSULIN GLARGINE
     Indication: TYPE 2 DIABETES MELLITUS
     Dosage: 6 IU, QD (IN THE EVENING)
     Route: 065
  3. EXJADE [Suspect]
     Active Substance: DEFERASIROX
     Indication: MYELODYSPLASTIC SYNDROME
     Dosage: 6.09 MG/KG, QD (1 TABLET 500 MG/DAY)
     Route: 065
     Dates: start: 20151014, end: 20160404
  4. EXJADE [Suspect]
     Active Substance: DEFERASIROX
     Dosage: UNK
     Route: 065
     Dates: start: 20170509, end: 20170730
  5. ENDOXAN [Concomitant]
     Active Substance: CYCLOPHOSPHAMIDE
     Indication: PRODUCT USED FOR UNKNOWN INDICATION
     Dosage: 2 DF, UNK
     Route: 065
     Dates: start: 20150810, end: 201510
  6. VERTIGOHEEL [Concomitant]
     Active Substance: HOMEOPATHICS
     Indication: DIZZINESS
  7. ACTRAPID [Concomitant]
     Active Substance: INSULIN HUMAN
     Indication: TYPE 2 DIABETES MELLITUS
     Dosage: UNK
     Route: 065
  8. EXJADE [Suspect]
     Active Substance: DEFERASIROX
     Dosage: 17.8 MG/KG, QD (3 TABLET ? 500 MG DAILY)
     Route: 065
     Dates: start: 20160730, end: 20161128
  9. SIMVASTATIN. [Concomitant]
     Active Substance: SIMVASTATIN
     Indication: HYPERCHOLESTEROLAEMIA
     Dosage: 40 MG, QD
     Route: 065
  10. ALLOPURINOL. [Concomitant]
     Active Substance: ALLOPURINOL
     Indication: GOUT
     Dosage: 100 MG, QD
     Route: 065
  11. EXJADE [Suspect]
     Active Substance: DEFERASIROX
     Dosage: 5.88 MG/KG, QD (1 TABLET ? 500 MG DAILY)
     Route: 065
     Dates: start: 20161129, end: 20170201
  12. ASPIRIN. [Concomitant]
     Active Substance: ASPIRIN
     Indication: VENTRICULAR TACHYCARDIA
     Dosage: 100 MG, QD
     Route: 065
  13. EXJADE [Suspect]
     Active Substance: DEFERASIROX
     Dosage: 11.62 MG/KG, UNK
     Route: 065
     Dates: start: 20170202, end: 20170508
  14. ACTRAPID//INSULIN PORCINE [Concomitant]
     Indication: TYPE 2 DIABETES MELLITUS
     Dosage: UNK
     Route: 065
  15. EXJADE [Suspect]
     Active Substance: DEFERASIROX
     Indication: REFRACTORY ANAEMIA WITH AN EXCESS OF BLASTS
     Dosage: 12 MG/KG, QD (2 TABLET 500 MG PER DAY)
     Route: 065
     Dates: start: 20160405, end: 20160729
  16. EXJADE [Suspect]
     Active Substance: DEFERASIROX
     Dosage: 8.7 MG/KGBW, QD
     Route: 065
     Dates: start: 20170731
  17. VALSARTAN. [Concomitant]
     Active Substance: VALSARTAN
     Indication: HYPERTENSION
     Dosage: 80 MG, QD
     Route: 065
  18. VERTIGOHEEL [Concomitant]
     Active Substance: HOMEOPATHICS
     Indication: VERTIGO
     Dosage: UNK
     Route: 065

REACTIONS (18)
  - Haemoglobin decreased [Recovered/Resolved]
  - Leukopenia [Unknown]
  - Haemoglobin decreased [Recovered/Resolved]
  - Fatigue [Unknown]
  - Urinary tract infection [Recovering/Resolving]
  - Urethral stenosis [Recovered/Resolved]
  - Anaemia [Unknown]
  - Haemoglobin decreased [Recovered/Resolved]
  - White blood cell count decreased [Unknown]
  - Haemoglobin decreased [Recovered/Resolved]
  - Thrombocytopenia [Unknown]
  - Pyrexia [Recovered/Resolved]
  - Haemoglobin decreased [Recovered/Resolved]
  - Escherichia urinary tract infection [Recovered/Resolved]
  - Neutrophil count increased [Unknown]
  - Creatinine renal clearance decreased [Unknown]
  - Haemoglobin decreased [Recovered/Resolved]
  - Urinary tract infection [Recovered/Resolved]

NARRATIVE: CASE EVENT DATE: 20151026
